FAERS Safety Report 14146625 (Version 1)
Quarter: 2017Q4

REPORT INFORMATION
  Report Type: Spontaneous
  Country: US (occurrence: US)
  Receive Date: 20171031
  Receipt Date: 20171031
  Transmission Date: 20180321
  Serious: No
  Sender: FDA-Public Use
  Company Number: US-BAUSCH-BL-2016-026869

PATIENT
  Age: 84 Year
  Sex: Female

DRUGS (3)
  1. SYSTANE (HYPROMELLOSE 2910 (4000 MPA.S)) [Suspect]
     Active Substance: HYPROMELLOSE 2910 (4000 MPA.S)
     Indication: DRY EYE
     Route: 047
     Dates: start: 2013
  2. GABAPENTIN. [Suspect]
     Active Substance: GABAPENTIN
     Indication: NEUROPATHY PERIPHERAL
     Route: 048
     Dates: start: 2014
  3. BEPREVE [Suspect]
     Active Substance: BEPOTASTINE BESILATE
     Indication: CONJUNCTIVITIS ALLERGIC
     Route: 047
     Dates: start: 20161028

REACTIONS (1)
  - Vision blurred [Not Recovered/Not Resolved]
